FAERS Safety Report 6970382-5 (Version None)
Quarter: 2010Q3

REPORT INFORMATION
  Report Type: 
  Country: None (occurrence: None)
  Receive Date: 20100908
  Receipt Date: 20100831
  Transmission Date: 20110219
  Serious: Yes (Life-Threatening)
  Sender: FDA-Public Use
  Company Number: DE-SANOFI-AVENTIS-2010SA051633

PATIENT
  Sex: Male
  Weight: 79 kg

DRUGS (1)
  1. MULTAQ [Suspect]
     Indication: VENTRICULAR ARRHYTHMIA
     Dosage: DAILY DOSE: 800 MG MILLIGRAM(S) EVERY DAY
     Route: 048
     Dates: start: 20100701, end: 20100731

REACTIONS (2)
  - OFF LABEL USE [None]
  - VENTRICULAR FIBRILLATION [None]
